FAERS Safety Report 26071010 (Version 1)
Quarter: 2025Q4

REPORT INFORMATION
  Report Type: Spontaneous
  Country: GB (occurrence: GB)
  Receive Date: 20251120
  Receipt Date: 20251120
  Transmission Date: 20260118
  Serious: Yes (Other)
  Sender: DR REDDYS
  Company Number: None

PATIENT
  Age: 28 Year
  Sex: Female
  Weight: 85 kg

DRUGS (2)
  1. FEXOFENADINE [Suspect]
     Active Substance: FEXOFENADINE HYDROCHLORIDE
     Indication: Hypersensitivity
     Dosage: 180 MG ONE DAILY
     Dates: start: 20251029
  2. MINERAL OIL\PETROLATUM\WAX, EMULSIFYING [Concomitant]
     Active Substance: MINERAL OIL\PETROLATUM\WAX, EMULSIFYING
     Indication: Hypersensitivity
     Dates: start: 20251105

REACTIONS (3)
  - Polymenorrhoea [Not Recovered/Not Resolved]
  - Migraine [Recovered/Resolved with Sequelae]
  - Abdominal pain upper [Recovered/Resolved]

NARRATIVE: CASE EVENT DATE: 20251103
